FAERS Safety Report 4778469-2 (Version None)
Quarter: 2005Q3

REPORT INFORMATION
  Report Type: 
  Country: None (occurrence: None)
  Receive Date: 20050923
  Receipt Date: 20050923
  Transmission Date: 20060218
  Serious: Yes (Hospitalization)
  Sender: FDA-Public Use
  Company Number: None

PATIENT
  Age: 79 Year
  Sex: Male
  Weight: 83.9154 kg

DRUGS (6)
  1. JANTOVEN [Suspect]
     Indication: ATRIAL FLUTTER
     Dosage: 10 MG Q HS EXCEPT 7.5 MG 2 NIGHTS PER WEEK
     Dates: start: 20050908, end: 20050915
  2. ATENOLOL [Concomitant]
  3. ZOCOR [Concomitant]
  4. NEXIUM [Concomitant]
  5. ENALAPRIL [Concomitant]
  6. FUROSEMIDE [Concomitant]

REACTIONS (1)
  - EPISTAXIS [None]
